FAERS Safety Report 10426203 (Version 1)
Quarter: 2014Q3

REPORT INFORMATION
  Report Type: Spontaneous
  Country: US (occurrence: None)
  Receive Date: 20140725
  Receipt Date: 20140725
  Transmission Date: 20150326
  Serious: No
  Sender: FDA-Public Use
  Company Number: AP356-00615-SPO-US

PATIENT
  Age: 59 Year
  Sex: Female
  Weight: 127 kg

DRUGS (7)
  1. HYDROCHLOROTHIAZIDE. [Concomitant]
     Active Substance: HYDROCHLOROTHIAZIDE
  2. BELVIQ [Suspect]
     Active Substance: LORCASERIN HYDROCHLORIDE
     Indication: WEIGHT DECREASED
     Route: 048
     Dates: start: 20140325, end: 20140401
  3. POTASSIUM [Concomitant]
     Active Substance: POTASSIUM
  4. CITALOPRAM [Concomitant]
     Active Substance: CITALOPRAM HYDROBROMIDE
  5. DIOVAN [Concomitant]
     Active Substance: VALSARTAN
  6. NEXIUM [Concomitant]
     Active Substance: ESOMEPRAZOLE MAGNESIUM
  7. VITAMINS (VIGRAN) [Concomitant]

REACTIONS (2)
  - Meniere^s disease [None]
  - Dizziness [None]

NARRATIVE: CASE EVENT DATE: 201403
